FAERS Safety Report 15571160 (Version 14)
Quarter: 2021Q3

REPORT INFORMATION
  Report Type: Spontaneous
  Country: US (occurrence: US)
  Receive Date: 20181031
  Receipt Date: 20210802
  Transmission Date: 20211014
  Serious: Yes (Other)
  Sender: FDA-Public Use
  Company Number: US-PFIZER INC-2018444792

PATIENT
  Age: 64 Year
  Sex: Male
  Weight: 101 kg

DRUGS (9)
  1. LYRICA [Suspect]
     Active Substance: PREGABALIN
     Dosage: 300 MG, DAILY [225 MG IN AM, 75 MG IN EVENING, 90 DAY SUPPLY]
     Route: 048
     Dates: start: 20190807
  2. LYRICA [Suspect]
     Active Substance: PREGABALIN
     Indication: NEURALGIA
     Dosage: 225 MG, DAILY [150 MG (DAY) AND 75 MG (NIGHT)]
     Route: 048
     Dates: start: 20180518, end: 2019
  3. LYRICA [Suspect]
     Active Substance: PREGABALIN
     Dosage: 225 MG, DAILY [150 MG (DAY) AND 75 MG (NIGHT)]
     Route: 048
     Dates: start: 20180518, end: 2019
  4. LYRICA [Suspect]
     Active Substance: PREGABALIN
     Dosage: 300 MG, DAILY[3 CAPSULES (225 MG) IN MORNING, 1 CAPSULE (75 MG) IN EVENING]
     Route: 048
     Dates: start: 20210715
  5. LYRICA [Suspect]
     Active Substance: PREGABALIN
     Dosage: 225 MG, DAILY [150 MG (MORNING) AND 75 MG (EVENING)]
     Route: 048
     Dates: start: 20200312
  6. LYRICA [Suspect]
     Active Substance: PREGABALIN
     Dosage: 225 MG, DAILY (IN MORNING)
     Route: 048
  7. LYRICA [Suspect]
     Active Substance: PREGABALIN
     Dosage: 225 MG, 2X/DAY (TAKE 3 CAPS (225 MG) BY MOUTH 2 TIMES DALLY)
     Route: 048
  8. LYRICA [Suspect]
     Active Substance: PREGABALIN
     Dosage: 75 MG, 1X/DAY,(1 CAP (75 MG) BY MOUTH EVERY EVENING)
     Route: 048
  9. LYRICA [Suspect]
     Active Substance: PREGABALIN
     Dosage: 225 MG, DAILY (EVERY EVENING)
     Route: 048

REACTIONS (4)
  - Ankle fracture [Unknown]
  - Blindness [Unknown]
  - Deafness [Unknown]
  - Foot fracture [Unknown]
